FAERS Safety Report 10993244 (Version 3)
Quarter: 2015Q3

REPORT INFORMATION
  Report Type: Report from Study
  Country: JP (occurrence: JP)
  Receive Date: 20150407
  Receipt Date: 20150817
  Transmission Date: 20151125
  Serious: Yes (Hospitalization, Other)
  Sender: FDA-Public Use
  Company Number: JP-PFIZER INC-2015117030

PATIENT
  Age: 86 Year
  Sex: Male
  Weight: 79.2 kg

DRUGS (13)
  1. FOSPHENYTOIN SODIUM. [Suspect]
     Active Substance: FOSPHENYTOIN SODIUM
     Dosage: 7.5 MG/KG/DAY 10 MG/MIN WITH 0.9% PHYSIOLOGICAL SALINE (DILUTION RATIO 10-FOLD DILUTION)
     Dates: start: 20131014
  2. FOSPHENYTOIN SODIUM. [Suspect]
     Active Substance: FOSPHENYTOIN SODIUM
     Dosage: 7.5 MG/KG/DAY 10 MG/MIN WITH 0.9% PHYSIOLOGICAL SALINE (DILUTION RATIO 10-FOLD DILUTION)
     Dates: start: 20131017
  3. FOSPHENYTOIN SODIUM. [Suspect]
     Active Substance: FOSPHENYTOIN SODIUM
     Indication: CONVULSION PROPHYLAXIS
     Dosage: 9.5 MG/KG 12.5 MG/MIN WITH 0.9% PHYSIOLOGICAL SALINE (DILUTION RATIO 10-FOLD DILUTION)
     Dates: start: 20131011
  4. ALEVIATIN [Suspect]
     Active Substance: PHENYTOIN SODIUM
     Indication: EPILEPSY
     Dosage: 200 MG, DAILY
     Route: 048
     Dates: start: 20131019, end: 20131113
  5. FOSPHENYTOIN SODIUM. [Suspect]
     Active Substance: FOSPHENYTOIN SODIUM
     Dosage: 7.5 MG/KG/DAY 10 MG/MIN WITH 0.9% PHYSIOLOGICAL SALINE (DILUTION RATIO 10-FOLD DILUTION)
     Dates: start: 20131012
  6. GASTER [Concomitant]
     Active Substance: FAMOTIDINE
     Indication: PROPHYLAXIS
     Dosage: 40 MG, DAILY
     Dates: start: 20131011
  7. RINDERON V [Concomitant]
     Active Substance: BETAMETHASONE VALERATE
     Indication: BRAIN OEDEMA
     Dosage: 16 MG, DAILY
     Dates: start: 20131011
  8. FOSPHENYTOIN SODIUM. [Suspect]
     Active Substance: FOSPHENYTOIN SODIUM
     Dosage: 7.5 MG/KG/DAY 10 MG/MIN WITH 0.9% PHYSIOLOGICAL SALINE (DILUTION RATIO 10-FOLD DILUTION)
     Dates: start: 20131016
  9. FOSPHENYTOIN SODIUM. [Suspect]
     Active Substance: FOSPHENYTOIN SODIUM
     Dosage: 7.5 MG/KG/DAY 10 MG/MIN WITH 0.9% PHYSIOLOGICAL SALINE (DILUTION RATIO 10-FOLD DILUTION)
     Dates: start: 20131018
  10. FOSPHENYTOIN SODIUM. [Suspect]
     Active Substance: FOSPHENYTOIN SODIUM
     Dosage: 7.5 MG/KG/DAY 10 MG/MIN WITH 0.9% PHYSIOLOGICAL SALINE (DILUTION RATIO 10-FOLD DILUTION)
     Dates: start: 20131015
  11. FOSPHENYTOIN SODIUM. [Suspect]
     Active Substance: FOSPHENYTOIN SODIUM
     Dosage: 7.5 MG/KG/DAY 10 MG/MIN WITH 0.9% PHYSIOLOGICAL SALINE (DILUTION RATIO 10-FOLD DILUTION)
     Dates: start: 20131013
  12. RASENAZOLIN [Concomitant]
     Active Substance: CEFAZOLIN SODIUM
     Indication: PROPHYLAXIS
     Dosage: 2 G, DAILY
     Dates: start: 20131011, end: 20131013
  13. GLYCEREB [Concomitant]
     Indication: BRAIN OEDEMA
     Dosage: 400 ML, DAILY
     Dates: start: 20131012

REACTIONS (3)
  - Platelet count decreased [Recovered/Resolved]
  - Paralysis [Recovered/Resolved]
  - Amylase increased [Recovering/Resolving]

NARRATIVE: CASE EVENT DATE: 20131012
